FAERS Safety Report 21914394 (Version 1)
Quarter: 2023Q1

REPORT INFORMATION
  Report Type: Spontaneous
  Country: IT (occurrence: None)
  Receive Date: 20230126
  Receipt Date: 20230126
  Transmission Date: 20230417
  Serious: Yes (Life-Threatening, Hospitalization, Other)
  Sender: FDA-Public Use
  Company Number: IT-MLMSERVICE-20230109-4029939-1

PATIENT
  Age: 50 Year
  Sex: Female

DRUGS (2)
  1. EPIRUBICIN [Suspect]
     Active Substance: EPIRUBICIN
     Indication: Breast cancer
     Dosage: UNKNOWN
     Route: 065
  2. CYCLOPHOSPHAMIDE [Concomitant]
     Active Substance: CYCLOPHOSPHAMIDE
     Indication: Breast cancer
     Dosage: UNKNOWN
     Route: 065

REACTIONS (4)
  - Cardiogenic shock [Recovering/Resolving]
  - Multi-organ disorder [Recovering/Resolving]
  - Hyperlactacidaemia [Recovered/Resolved]
  - Confusional state [Recovering/Resolving]
